FAERS Safety Report 25430022 (Version 5)
Quarter: 2025Q3

REPORT INFORMATION
  Report Type: Spontaneous
  Country: US (occurrence: US)
  Receive Date: 20250612
  Receipt Date: 20250713
  Transmission Date: 20251021
  Serious: No
  Sender: JOHNSON AND JOHNSON
  Company Number: US-JNJFOC-20250614434

PATIENT
  Age: 28 Year
  Sex: Male
  Weight: 75.3 kg

DRUGS (3)
  1. DARZALEX [Suspect]
     Active Substance: DARATUMUMAB
     Indication: Polymyositis
  2. DARZALEX [Suspect]
     Active Substance: DARATUMUMAB
  3. DARZALEX [Suspect]
     Active Substance: DARATUMUMAB

REACTIONS (2)
  - Product physical issue [Unknown]
  - Product dose omission issue [Unknown]
